FAERS Safety Report 20491429 (Version 5)
Quarter: 2024Q1

REPORT INFORMATION
  Report Type: Spontaneous
  Country: US (occurrence: US)
  Receive Date: 20220218
  Receipt Date: 20240314
  Transmission Date: 20240410
  Serious: Yes (Death, Hospitalization, Other)
  Sender: FDA-Public Use
  Company Number: US-PFIZER INC-202200270274

PATIENT
  Age: 88 Year
  Sex: Male
  Weight: 68.95 kg

DRUGS (3)
  1. VYNDAMAX [Suspect]
     Active Substance: TAFAMIDIS
     Indication: Cardiac amyloidosis
     Dosage: 61 MG, DAILY (AT 06:00PM)
     Dates: start: 202108
  2. VYNDAMAX [Suspect]
     Active Substance: TAFAMIDIS
     Dosage: 61 MG
  3. VYNDAMAX [Suspect]
     Active Substance: TAFAMIDIS
     Dosage: 61MG ONCE A DAY
     Dates: start: 202107, end: 20240104

REACTIONS (4)
  - Cardiac failure [Fatal]
  - Cardio-respiratory arrest [Fatal]
  - Chronic lymphocytic leukaemia [Fatal]
  - Cardiac pacemaker insertion [Unknown]

NARRATIVE: CASE EVENT DATE: 20220214
